FAERS Safety Report 9936371 (Version 1)
Quarter: 2014Q1

REPORT INFORMATION
  Report Type: Spontaneous
  Country: US (occurrence: US)
  Receive Date: 20140228
  Receipt Date: 20140228
  Transmission Date: 20141002
  Serious: No
  Sender: FDA-Public Use
  Company Number: US-AMGEN-USASP2014002956

PATIENT
  Age: 58 Year
  Sex: Female

DRUGS (3)
  1. ENBREL [Suspect]
     Indication: RHEUMATOID ARTHRITIS
     Dosage: 50 MG, QWK
     Route: 065
     Dates: start: 20131025
  2. ARVA [Concomitant]
     Dosage: 10 MILLIGRAM TABLET BY MOUTH DAILY
     Route: 048
     Dates: start: 201401
  3. METHOTREXATE [Concomitant]
     Dosage: UNK
     Dates: end: 201401

REACTIONS (1)
  - Arthritis [Not Recovered/Not Resolved]
